FAERS Safety Report 5285384-7 (Version None)
Quarter: 2007Q1

REPORT INFORMATION
  Report Type: 
  Country: None (occurrence: None)
  Receive Date: 20070328
  Receipt Date: 20070313
  Transmission Date: 20070707
  Serious: Yes (Disabling)
  Sender: FDA-Public Use
  Company Number: 2007EU000238

PATIENT
  Sex: Female

DRUGS (5)
  1. PROGRAF [Suspect]
     Indication: RENAL TRANSPLANT
     Dosage: 2 MG/D, TRANSPLACENTAL
     Route: 064
  2. CELLCEPT [Suspect]
     Indication: RENAL TRANSPLANT
     Dosage: 1 DF/D, TRANSPLACENTAL
     Route: 064
  3. PREDNISONE TAB [Suspect]
     Indication: RENAL TRANSPLANT
     Dosage: 4 MG/D, TRANSPLACENTAL
     Route: 064
  4. ACEBUTOLOL [Suspect]
     Indication: RENAL TRANSPLANT
     Dosage: 600 MG/D, TRANSPLACENTAL
     Route: 064
  5. OROCAL VITAMIN D(COLECALCIFEROL, CALCIUM CARBONATE) [Suspect]
     Dosage: 2 DF, TRANSPLACENTAL
     Route: 064

REACTIONS (3)
  - CONGENITAL RENAL CYST [None]
  - DRUG EXPOSURE DURING PREGNANCY [None]
  - EAR MALFORMATION [None]
